FAERS Safety Report 15603979 (Version 1)
Quarter: 2018Q4

REPORT INFORMATION
  Report Type: Spontaneous
  Country: US (occurrence: US)
  Receive Date: 20181109
  Receipt Date: 20181109
  Transmission Date: 20190205
  Serious: No
  Sender: FDA-Public Use
  Company Number: US-AMGEN-KDL443161

PATIENT
  Age: 67 Year
  Sex: Male

DRUGS (1)
  1. PROCRIT [Suspect]
     Active Substance: ERYTHROPOIETIN
     Indication: END STAGE RENAL DISEASE
     Dosage: 10000 IU, 3 TIMES/WK
     Route: 058

REACTIONS (3)
  - Chills [Recovered/Resolved]
  - Tremor [Recovered/Resolved]
  - Night sweats [Recovering/Resolving]

NARRATIVE: CASE EVENT DATE: 201009
